FAERS Safety Report 12054193 (Version 2)
Quarter: 2016Q2

REPORT INFORMATION
  Report Type: Spontaneous
  Country: BR (occurrence: BR)
  Receive Date: 20160209
  Receipt Date: 20160404
  Transmission Date: 20160815
  Serious: Yes (Other)
  Sender: FDA-Public Use
  Company Number: BR-JNJFOC-20160207297

PATIENT
  Age: 44 Year
  Sex: Female

DRUGS (2)
  1. BIPROFENID [Concomitant]
     Active Substance: KETOPROFEN
     Route: 065
  2. SIMPONI [Suspect]
     Active Substance: GOLIMUMAB
     Indication: RHEUMATOID ARTHRITIS
     Route: 058
     Dates: start: 20150409

REACTIONS (4)
  - Abdominoplasty [Unknown]
  - Post procedural complication [Unknown]
  - Scar excision [Unknown]
  - Mammoplasty [Unknown]

NARRATIVE: CASE EVENT DATE: 20151117
